FAERS Safety Report 7382540-9 (Version None)
Quarter: 2011Q1

REPORT INFORMATION
  Report Type: 
  Country: None (occurrence: None)
  Receive Date: 20110329
  Receipt Date: 20110321
  Transmission Date: 20110831
  Serious: Yes (Hospitalization, Other)
  Sender: FDA-Public Use
  Company Number: FR-BRISTOL-MYERS SQUIBB COMPANY-15625064

PATIENT
  Age: 28 Year
  Sex: Male

DRUGS (6)
  1. ABILIFY [Suspect]
     Dates: end: 20110104
  2. VALIUM [Concomitant]
     Dosage: VALIUM ROCHE
     Dates: start: 20101203, end: 20110103
  3. EFFEXOR [Concomitant]
     Dosage: EFFEXOR LP
     Dates: start: 20090401
  4. SERESTA [Concomitant]
     Dates: start: 20110103
  5. MEPRONIZINE [Concomitant]
     Dates: start: 20090401
  6. AVLOCARDYL [Concomitant]
     Dosage: FOR A LONG TIME

REACTIONS (3)
  - HEPATITIS CHOLESTATIC [None]
  - HYPERTRIGLYCERIDAEMIA [None]
  - HYPERCHOLESTEROLAEMIA [None]
